FAERS Safety Report 6630169-X (Version None)
Quarter: 2010Q1

REPORT INFORMATION
  Report Type: 
  Country: None (occurrence: None)
  Receive Date: 20100311
  Receipt Date: 20100223
  Transmission Date: 20100710
  Serious: Yes (Hospitalization)
  Sender: FDA-Public Use
  Company Number: US-B.I. PHARMACEUTICALS,INC./RIDGEFIELD-2010-DE-01265GD

PATIENT
  Age: 9 Year
  Sex: Male

DRUGS (15)
  1. ZANTAC [Suspect]
     Indication: DERMATITIS CONTACT
     Dosage: 150 MG
  2. ZANTAC [Suspect]
     Indication: DERMATITIS ATOPIC
  3. SINGULAIR [Suspect]
     Indication: DERMATITIS CONTACT
     Dosage: 5 MG
     Route: 048
  4. SINGULAIR [Suspect]
     Indication: DERMATITIS ATOPIC
  5. ATARAX [Concomitant]
     Indication: DERMATITIS CONTACT
     Dosage: ONE TO TWO TABLETS
     Route: 048
  6. ATARAX [Concomitant]
     Indication: DERMATITIS ATOPIC
  7. HYDROCORTISONE BUTYRATE [Concomitant]
     Indication: DERMATITIS CONTACT
     Dosage: STRENGTH: 0.1%
     Route: 061
  8. HYDROCORTISONE BUTYRATE [Concomitant]
     Indication: DERMATITIS ATOPIC
  9. DOXEPIN HCL [Concomitant]
     Indication: DERMATITIS CONTACT
     Dosage: 5 MG AS NEEDED
  10. DOXEPIN HCL [Concomitant]
     Indication: DERMATITIS ATOPIC
  11. ADVAIR DISKUS 100/50 [Concomitant]
     Dosage: 100/50 ONE PUFF TWICE A DAY
     Route: 055
  12. ZYRTEC [Concomitant]
     Indication: DERMATITIS CONTACT
     Dosage: 10 MG
  13. ZYRTEC [Concomitant]
     Indication: DERMATITIS ATOPIC
  14. NASONEX [Concomitant]
     Dosage: ONE SPRAY TO EACH NOSTRIL
     Route: 045
  15. TACROLIMUS [Concomitant]
     Indication: DERMATITIS ATOPIC
     Dosage: 0.03%
     Route: 061

REACTIONS (2)
  - DERMATITIS EXFOLIATIVE [None]
  - DISEASE RECURRENCE [None]
